FAERS Safety Report 19862680 (Version 1)
Quarter: 2021Q3

REPORT INFORMATION
  Report Type: Spontaneous
  Country: US (occurrence: US)
  Receive Date: 20210921
  Receipt Date: 20210921
  Transmission Date: 20211014
  Serious: No
  Sender: FDA-Public Use
  Company Number: US-ASTRAZENECA-2021A708993

PATIENT
  Age: 736 Month
  Sex: Male
  Weight: 78 kg

DRUGS (2)
  1. SYMBICORT [Suspect]
     Active Substance: BUDESONIDE\FORMOTEROL FUMARATE DIHYDRATE
     Indication: ASTHMA
     Dosage: 2 PUFFS DAILY
     Route: 055
  2. SYMBICORT [Suspect]
     Active Substance: BUDESONIDE\FORMOTEROL FUMARATE DIHYDRATE
     Indication: ASTHMA
     Dosage: 1 PUFF DAILY
     Route: 055

REACTIONS (8)
  - COVID-19 [Unknown]
  - Fatigue [Unknown]
  - Ear infection [Unknown]
  - Immunodeficiency [Unknown]
  - Product use issue [Unknown]
  - Thyroid disorder [Unknown]
  - Irritable bowel syndrome [Unknown]
  - Pharyngeal swelling [Unknown]

NARRATIVE: CASE EVENT DATE: 202002
